FAERS Safety Report 20969579 (Version 1)
Quarter: 2022Q2

REPORT INFORMATION
  Report Type: Spontaneous
  Country: US (occurrence: US)
  Receive Date: 20220616
  Receipt Date: 20220616
  Transmission Date: 20220721
  Serious: No
  Sender: FDA-Public Use
  Company Number: US-AMNEAL PHARMACEUTICALS-2022-AMRX-01658

PATIENT
  Sex: Female
  Weight: 68.027 kg

DRUGS (2)
  1. ETHINYL ESTRADIOL\NORELGESTROMIN [Suspect]
     Active Substance: ETHINYL ESTRADIOL\NORELGESTROMIN
     Indication: Contraception
     Dosage: 150/35 MCG/DAY, ONE PATCH A WEEK ON EVERY WEDNESDAY
     Route: 062
     Dates: start: 202201
  2. ALBUTEROL [Concomitant]
     Active Substance: ALBUTEROL
     Indication: Asthma
     Dosage: UNK
     Route: 048
     Dates: start: 2012

REACTIONS (3)
  - Product adhesion issue [Unknown]
  - Product substitution issue [Unknown]
  - No adverse event [Unknown]
